FAERS Safety Report 12972137 (Version 1)
Quarter: 2016Q4

REPORT INFORMATION
  Report Type: Spontaneous
  Country: FR (occurrence: FR)
  Receive Date: 20161124
  Receipt Date: 20161124
  Transmission Date: 20170207
  Serious: Yes (Hospitalization)
  Sender: FDA-Public Use
  Company Number: FR-AUROBINDO-AUR-APL-2016-14280

PATIENT
  Age: 73 Year
  Sex: Female

DRUGS (5)
  1. EPREX [Concomitant]
     Active Substance: ERYTHROPOIETIN
     Indication: PRODUCT USED FOR UNKNOWN INDICATION
     Route: 065
  2. CEFPODOXIME FILM-COATED TABLET 100MG [Suspect]
     Active Substance: CEFPODOXIME
     Indication: EAR INFECTION
     Dosage: 1 DF, TWO TIMES A DAY
     Route: 048
     Dates: start: 20160705, end: 20160709
  3. PREDNISOLONE ARROW LAB 20 MG ORODISPERSIBLE TABLET [Suspect]
     Active Substance: PREDNISOLONE
     Indication: EAR PAIN
     Dosage: UNK
     Route: 048
     Dates: start: 20160709, end: 20160711
  4. LIPANTHYL [Concomitant]
     Active Substance: FENOFIBRATE
     Indication: PRODUCT USED FOR UNKNOWN INDICATION
     Dosage: UNK
     Route: 048
     Dates: end: 20160831
  5. IBUPROFEN. [Suspect]
     Active Substance: IBUPROFEN
     Indication: PRODUCT USED FOR UNKNOWN INDICATION
     Route: 048

REACTIONS (1)
  - Nephrotic syndrome [Recovered/Resolved]

NARRATIVE: CASE EVENT DATE: 20160720
